FAERS Safety Report 18387275 (Version 1)
Quarter: 2020Q4

REPORT INFORMATION
  Report Type: Spontaneous
  Country: US (occurrence: US)
  Receive Date: 20201014
  Receipt Date: 20201014
  Transmission Date: 20210114
  Serious: Yes (Hospitalization)
  Sender: FDA-Public Use
  Company Number: None

PATIENT
  Age: 64 Year
  Sex: Female

DRUGS (18)
  1. INDOMETHACIN. [Concomitant]
     Active Substance: INDOMETHACIN
  2. TRIAMT/HCTZ [Concomitant]
     Active Substance: HYDROCHLOROTHIAZIDE\TRIAMTERENE
  3. AJOVY [Concomitant]
     Active Substance: FREMANEZUMAB-VFRM
  4. OLANZAPINE. [Concomitant]
     Active Substance: OLANZAPINE
  5. CYCANCOBALAM [Concomitant]
  6. OLMESA MEDOX [Concomitant]
  7. DEXAMETHASONE. [Concomitant]
     Active Substance: DEXAMETHASONE
  8. HYDROMORPHINE [Concomitant]
     Active Substance: HYDROMORPHONE
  9. NYSTATIN. [Concomitant]
     Active Substance: NYSTATIN
  10. POT CHLORIDE [Concomitant]
     Active Substance: POTASSIUM CHLORIDE
  11. REPATHA [Suspect]
     Active Substance: EVOLOCUMAB
     Indication: PRODUCT USED FOR UNKNOWN INDICATION
     Route: 058
     Dates: start: 20200721
  12. OXYCODONE AND ACETAMINOPHEN [Concomitant]
     Active Substance: ACETAMINOPHEN\OXYCODONE HYDROCHLORIDE
  13. TRULANCE [Concomitant]
     Active Substance: PLECANATIDE
  14. ATORVASTATIN [Concomitant]
     Active Substance: ATORVASTATIN
  15. HYDROCHLOROT [Concomitant]
     Active Substance: HYDROCHLOROTHIAZIDE
  16. PANTOPRAZOLE [Concomitant]
     Active Substance: PANTOPRAZOLE
  17. METOPROLOL. [Concomitant]
     Active Substance: METOPROLOL
  18. ROPINEROLE [Concomitant]
     Active Substance: ROPINIROLE

REACTIONS (1)
  - Headache [None]
